FAERS Safety Report 8785741 (Version 2)
Quarter: 2012Q4

REPORT INFORMATION
  Report Type: 
  Country: FR (occurrence: FR)
  Receive Date: 20120914
  Receipt Date: 20120924
  Transmission Date: 20130627
  Serious: Yes (Death)
  Sender: FDA-Public Use
  Company Number: FR-SANOFI-AVENTIS-2012SA064074

PATIENT
  Age: 68 Year
  Sex: Female
  Weight: 81 kg

DRUGS (4)
  1. TAXOTERE [Suspect]
     Indication: BREAST CANCER
     Route: 042
     Dates: start: 20120814, end: 20120814
  2. DEXAMETHASONE [Concomitant]
     Route: 042
     Dates: start: 20120814, end: 20120814
  3. RANITIDINE [Concomitant]
     Route: 042
     Dates: start: 20120814, end: 20120814
  4. ONDANSETRON [Concomitant]
     Route: 042
     Dates: start: 20120814, end: 20120814

REACTIONS (1)
  - Coma [Fatal]
